FAERS Safety Report 24663147 (Version 1)
Quarter: 2024Q4

REPORT INFORMATION
  Report Type: Spontaneous
  Country: TR (occurrence: TR)
  Receive Date: 20241126
  Receipt Date: 20241126
  Transmission Date: 20250115
  Serious: Yes (Hospitalization)
  Sender: ROCHE
  Company Number: TR-002147023-NVSC2024TR223902

PATIENT
  Age: 69 Year
  Sex: Female

DRUGS (1)
  1. XOLAIR [Suspect]
     Active Substance: OMALIZUMAB
     Indication: Urticaria
     Dosage: 4 BOXES (FOR 10 YEARS)
     Route: 065

REACTIONS (4)
  - Dyspnoea [Unknown]
  - Muscle strain [Unknown]
  - Urticaria [Unknown]
  - Product supply issue [Unknown]
